FAERS Safety Report 7475373-6 (Version None)
Quarter: 2011Q2

REPORT INFORMATION
  Report Type: 
  Country: None (occurrence: None)
  Receive Date: 20110512
  Receipt Date: 20110502
  Transmission Date: 20111010
  Serious: Yes (Other)
  Sender: FDA-Public Use
  Company Number: US-CELGENEUS-163-21880-11021641

PATIENT
  Sex: Female

DRUGS (8)
  1. HYZAAR [Concomitant]
     Route: 065
  2. POTASSIUM [Concomitant]
     Route: 065
  3. DEXAMETHASONE [Concomitant]
     Route: 065
  4. OXYCODONE HCL [Concomitant]
     Route: 065
  5. VITAMIN B [Concomitant]
     Route: 065
  6. EVISTA [Concomitant]
     Route: 065
  7. FENTANYL [Concomitant]
     Route: 065
  8. REVLIMID [Suspect]
     Indication: MULTIPLE MYELOMA
     Dosage: 25 MILLIGRAM
     Route: 048
     Dates: start: 20101221

REACTIONS (1)
  - PATHOLOGICAL FRACTURE [None]
